FAERS Safety Report 10613533 (Version 3)
Quarter: 2015Q1

REPORT INFORMATION
  Report Type: Spontaneous
  Country: FR (occurrence: FR)
  Receive Date: 20141128
  Receipt Date: 20150319
  Transmission Date: 20150720
  Serious: Yes (Life-Threatening, Hospitalization, Other)
  Sender: FDA-Public Use
  Company Number: FR-CELGENE-FRA-2014114194

PATIENT
  Age: 60 Year
  Sex: Male
  Weight: 76 kg

DRUGS (2)
  1. VIDAZA [Suspect]
     Active Substance: AZACITIDINE
     Indication: MYELODYSPLASTIC SYNDROME
     Route: 058
     Dates: start: 20140927, end: 20141007
  2. VIDAZA [Suspect]
     Active Substance: AZACITIDINE
     Route: 058
     Dates: start: 20140927, end: 20141007

REACTIONS (10)
  - Vomiting [Recovered/Resolved]
  - General physical health deterioration [Recovered/Resolved]
  - Abscess oral [Recovered/Resolved with Sequelae]
  - Ageusia [Not Recovered/Not Resolved]
  - Diarrhoea [Recovering/Resolving]
  - Decreased appetite [Recovered/Resolved]
  - Acute kidney injury [Recovering/Resolving]
  - Mucosal ulceration [Not Recovered/Not Resolved]
  - Thrombocytopenia [Recovered/Resolved]
  - Anaemia [Recovered/Resolved]

NARRATIVE: CASE EVENT DATE: 20140927
